FAERS Safety Report 16296137 (Version 1)
Quarter: 2019Q2

REPORT INFORMATION
  Report Type: Spontaneous
  Country: CN (occurrence: CN)
  Receive Date: 20190509
  Receipt Date: 20190509
  Transmission Date: 20190711
  Serious: Yes (Life-Threatening, Other)
  Sender: FDA-Public Use
  Company Number: CN-BAXTER-2019BAX009142

PATIENT
  Age: 63 Year
  Sex: Female
  Weight: 45 kg

DRUGS (2)
  1. 0.9% SODIUM CHLORIDE INJECTION [Suspect]
     Active Substance: SODIUM CHLORIDE
     Indication: MEDICATION DILUTION
     Route: 041
     Dates: start: 20190410, end: 20190410
  2. QUANBO [Suspect]
     Active Substance: NEDAPLATIN
     Indication: CHEMOTHERAPY
     Route: 041
     Dates: start: 20190410, end: 20190410

REACTIONS (7)
  - Exfoliative rash [Recovering/Resolving]
  - Chest discomfort [Recovering/Resolving]
  - Rash generalised [Recovering/Resolving]
  - Swelling face [Recovering/Resolving]
  - Dyspnoea [Recovering/Resolving]
  - Swelling of eyelid [Recovering/Resolving]
  - Pruritus [Recovering/Resolving]

NARRATIVE: CASE EVENT DATE: 20190410
